FAERS Safety Report 5323451-X (Version None)
Quarter: 2007Q2

REPORT INFORMATION
  Report Type: 
  Country: None (occurrence: None)
  Receive Date: 20070514
  Receipt Date: 20070503
  Transmission Date: 20071010
  Serious: Yes (Hospitalization)
  Sender: FDA-Public Use
  Company Number: PHBS2007BR07787

PATIENT
  Age: 46 Year
  Sex: Male
  Weight: 72 kg

DRUGS (4)
  1. DIOVAN [Suspect]
     Indication: HYPERTENSION
     Dosage: 80 MG, BID
     Route: 048
     Dates: end: 20070219
  2. PROPRANOLOL HCL W/HYDROCHLOROTHIAZIDE [Concomitant]
     Indication: HYPERTENSION
     Dosage: PROP 80 / HCT 25 MG/DAY
     Route: 048
  3. SIMVASTATIN [Concomitant]
     Dosage: 20 MG, QD
     Route: 048
  4. ENALAPRIL [Concomitant]
     Dosage: 20 MG/DAY
     Route: 048

REACTIONS (11)
  - ACUTE MYOCARDIAL INFARCTION [None]
  - ANGIOPLASTY [None]
  - CATHETERISATION CARDIAC [None]
  - CHEST PAIN [None]
  - CORONARY ARTERY BYPASS [None]
  - DEEP VEIN THROMBOSIS [None]
  - DYSPNOEA [None]
  - HYPERTENSION [None]
  - HYPOAESTHESIA [None]
  - MALAISE [None]
  - SPEECH DISORDER [None]
